FAERS Safety Report 9014134 (Version 1)
Quarter: 2013Q1

REPORT INFORMATION
  Report Type: Spontaneous
  Country: GB (occurrence: GB)
  Receive Date: 20130115
  Receipt Date: 20130115
  Transmission Date: 20140127
  Serious: Yes (Other)
  Sender: FDA-Public Use
  Company Number: GB-ABBOTT-12P-167-0905506-00

PATIENT
  Age: 58 None
  Sex: Female
  Weight: 70.9 kg

DRUGS (4)
  1. HUMIRA [Suspect]
     Indication: ANKYLOSING SPONDYLITIS
     Dosage: EVERY TWO WEEKS
     Dates: start: 201009
  2. ESOMEPRAZOLE [Concomitant]
     Indication: GASTROOESOPHAGEAL REFLUX DISEASE
     Route: 048
  3. KETOROFEN [Concomitant]
     Indication: ANKYLOSING SPONDYLITIS
     Route: 048
  4. MOMETASONE NASAL SPRAY [Concomitant]
     Indication: PRODUCT USED FOR UNKNOWN INDICATION
     Route: 045

REACTIONS (5)
  - Dysphonia [Not Recovered/Not Resolved]
  - Laryngitis [Not Recovered/Not Resolved]
  - Dysphonia [Recovered/Resolved]
  - Pharyngitis [Unknown]
  - Gastrooesophageal reflux disease [Unknown]
